FAERS Safety Report 9797982 (Version 1)
Quarter: 2014Q1

REPORT INFORMATION
  Report Type: Spontaneous
  Country: FR (occurrence: None)
  Receive Date: 20140102
  Receipt Date: 20140102
  Transmission Date: 20141002
  Serious: Yes (Death, Life-Threatening, Hospitalization)
  Sender: FDA-Public Use
  Company Number: 2017695

PATIENT
  Age: 36 Year
  Sex: Male

DRUGS (26)
  1. CARBOPLATIN [Suspect]
     Indication: EXTRAGONADAL PRIMARY GERM CELL TUMOUR MIXED STAGE I
     Route: 042
     Dates: start: 20091109, end: 20091111
  2. ETOPOSIDE [Suspect]
     Indication: EXTRAGONADAL PRIMARY GERM CELL TUMOUR MIXED STAGE I
     Route: 042
     Dates: start: 20091109, end: 20091111
  3. CIPROFLOXACIN [Concomitant]
     Indication: ANTIBIOTIC THERAPY
     Route: 048
  4. FLUCONAZOLE [Concomitant]
     Indication: ANTIBIOTIC THERAPY
     Route: 048
  5. AMOXICILLIN [Suspect]
     Indication: ANTIBIOTIC THERAPY
     Route: 048
     Dates: start: 20091117, end: 20091121
  6. LAROXYL [Suspect]
     Indication: PRODUCT USED FOR UNKNOWN INDICATION
     Route: 048
     Dates: start: 20091109, end: 20091111
  7. EMEND [Suspect]
     Indication: PRODUCT USED FOR UNKNOWN INDICATION
     Route: 048
     Dates: start: 20091109, end: 20091111
  8. HALDOL [Suspect]
     Indication: NAUSEA
     Dosage: 1 AS NECESSARY
     Route: 048
     Dates: start: 20091112, end: 20091113
  9. CONTRAMAL [Suspect]
     Indication: PAIN
     Route: 048
     Dates: start: 20091113, end: 20091113
  10. POLARAMINE [Suspect]
     Indication: PREMEDICATION
     Route: 042
     Dates: start: 20091113, end: 20091113
  11. NEURONTIN [Suspect]
     Indication: PRODUCT USED FOR UNKNOWN INDICATION
     Route: 048
     Dates: start: 20091109, end: 20091113
  12. TOPALGIC [Concomitant]
     Indication: PAIN
     Route: 048
     Dates: start: 20091113, end: 20091113
  13. BIONOLYTE [Concomitant]
  14. OXYCONTIN [Concomitant]
  15. OXYNORM [Concomitant]
  16. LEXOMIL [Concomitant]
  17. PRIMPERAN [Concomitant]
  18. ORAMORPH [Concomitant]
  19. EFFERALGAN [Concomitant]
  20. VERSATIS [Concomitant]
  21. ZOPHREN [Concomitant]
  22. ONDANSETRON [Concomitant]
  23. NEUPOGEN [Concomitant]
  24. HYDROCORTISONE [Concomitant]
  25. PACLITAXEL [Concomitant]
  26. IFOSFAMIDE [Concomitant]

REACTIONS (2)
  - Febrile bone marrow aplasia [None]
  - Enteritis [None]
